FAERS Safety Report 22080918 (Version 4)
Quarter: 2023Q2

REPORT INFORMATION
  Report Type: Report from Study
  Country: US (occurrence: US)
  Receive Date: 20230309
  Receipt Date: 20230419
  Transmission Date: 20230721
  Serious: Yes (Other)
  Sender: FDA-Public Use
  Company Number: US-PFIZER INC-PV202300043875

PATIENT
  Age: 46 Year
  Sex: Female

DRUGS (4)
  1. BRAFTOVI [Suspect]
     Active Substance: ENCORAFENIB
     Dosage: 75 MG
     Dates: start: 20230304, end: 202303
  2. BRAFTOVI [Suspect]
     Active Substance: ENCORAFENIB
     Dosage: 3 PILLS DAILY
     Dates: start: 202303
  3. MEKTOVI [Suspect]
     Active Substance: BINIMETINIB
     Dosage: 15 MG
     Dates: start: 20230304, end: 202303
  4. MEKTOVI [Suspect]
     Active Substance: BINIMETINIB
     Dosage: 1 PILL BID
     Dates: start: 202303

REACTIONS (19)
  - Syncope [Unknown]
  - Hypertension [Unknown]
  - Cataract [Unknown]
  - Pain [Unknown]
  - Pyrexia [Not Recovered/Not Resolved]
  - Chills [Not Recovered/Not Resolved]
  - Arthritis [Unknown]
  - Swelling face [Unknown]
  - Erythema [Unknown]
  - Throat tightness [Unknown]
  - Headache [Unknown]
  - Scleral discolouration [Unknown]
  - Visual impairment [Unknown]
  - Palmar-plantar erythrodysaesthesia syndrome [Unknown]
  - Photopsia [Unknown]
  - Dry skin [Unknown]
  - Hyperkeratosis [Unknown]
  - Ocular hyperaemia [Unknown]
  - Oropharyngeal discomfort [Unknown]

NARRATIVE: CASE EVENT DATE: 20230101
